FAERS Safety Report 7560136-3 (Version None)
Quarter: 2011Q2

REPORT INFORMATION
  Report Type: 
  Country: None (occurrence: None)
  Receive Date: 20110621
  Receipt Date: 20110620
  Transmission Date: 20111010
  Serious: Yes (Other)
  Sender: FDA-Public Use
  Company Number: A0899210A

PATIENT
  Age: 51 Year
  Sex: Male

DRUGS (1)
  1. AVANDIA [Suspect]
     Indication: DIABETES MELLITUS
     Dosage: 8MG THREE TIMES PER DAY
     Route: 048
     Dates: start: 20071206, end: 20090101

REACTIONS (5)
  - DEAFNESS UNILATERAL [None]
  - ARTERIOSCLEROSIS [None]
  - CEREBROVASCULAR ACCIDENT [None]
  - BRAIN STEM STROKE [None]
  - CARDIAC FAILURE CONGESTIVE [None]
